FAERS Safety Report 4924779-5 (Version None)
Quarter: 2006Q1

REPORT INFORMATION
  Report Type: 
  Country: None (occurrence: None)
  Receive Date: 20060227
  Receipt Date: 20050829
  Transmission Date: 20060701
  Serious: Yes (Hospitalization)
  Sender: FDA-Public Use
  Company Number: US-MERCK-0508USA04610

PATIENT
  Age: 68 Year
  Sex: Female
  Weight: 112 kg

DRUGS (7)
  1. VIOXX [Suspect]
     Indication: BACK PAIN
     Route: 048
     Dates: start: 19990101, end: 20040601
  2. ASPIRIN [Concomitant]
     Route: 065
  3. DIGOXIN [Concomitant]
     Route: 065
  4. AMARYL [Concomitant]
     Route: 065
  5. LASIX [Concomitant]
     Route: 065
  6. COREG [Concomitant]
     Route: 065
  7. AVANDIA [Concomitant]
     Route: 065

REACTIONS (16)
  - BRONCHITIS [None]
  - CARDIAC FAILURE CONGESTIVE [None]
  - CEREBROVASCULAR ACCIDENT [None]
  - CHEST PAIN [None]
  - COLONIC POLYP [None]
  - DIABETIC NEUROPATHY [None]
  - DIZZINESS [None]
  - HAEMORRHOIDS [None]
  - LOWER GASTROINTESTINAL HAEMORRHAGE [None]
  - MENTAL STATUS CHANGES [None]
  - PARTIAL SEIZURES [None]
  - ROAD TRAFFIC ACCIDENT [None]
  - SYNCOPE [None]
  - THROMBOSIS [None]
  - UPPER RESPIRATORY TRACT INFECTION [None]
  - URINARY TRACT INFECTION [None]
